FAERS Safety Report 5068193-3 (Version None)
Quarter: 2006Q3

REPORT INFORMATION
  Report Type: 
  Country: None (occurrence: None)
  Receive Date: 20060802
  Receipt Date: 20050202
  Transmission Date: 20061208
  Serious: No
  Sender: FDA-Public Use
  Company Number: US-BRISTOL-MYERS SQUIBB COMPANY-12845566

PATIENT
  Age: 63 Year
  Sex: Male
  Weight: 68 kg

DRUGS (3)
  1. COUMADIN [Suspect]
  2. LANOXIN [Concomitant]
  3. ATENOLOL [Concomitant]

REACTIONS (3)
  - DISCOMFORT [None]
  - PANCREATIC DISORDER [None]
  - SPLEEN SCAN ABNORMAL [None]
